FAERS Safety Report 4374156-3 (Version None)
Quarter: 2004Q2

REPORT INFORMATION
  Report Type: 
  Country: None (occurrence: None)
  Receive Date: 20040607
  Receipt Date: 20040528
  Transmission Date: 20050107
  Serious: Yes (Hospitalization)
  Sender: FDA-Public Use
  Company Number: GB-MERCK-0406GBR00003

PATIENT
  Age: 66 Year
  Sex: Female

DRUGS (3)
  1. CANDESARTAN [Concomitant]
     Indication: HYPERTENSION
     Route: 048
  2. ZETIA [Suspect]
     Indication: HYPERCHOLESTEROLAEMIA
     Route: 048
     Dates: start: 20040523, end: 20040524
  3. VERAPAMIL [Concomitant]
     Indication: HYPERTENSION
     Route: 048

REACTIONS (3)
  - ASTHMA [None]
  - SWELLING FACE [None]
  - SWOLLEN TONGUE [None]
